FAERS Safety Report 7967617-9 (Version None)
Quarter: 2011Q4

REPORT INFORMATION
  Report Type: 
  Country: None (occurrence: None)
  Receive Date: 20111209
  Receipt Date: 20111129
  Transmission Date: 20120403
  Serious: Yes (Death, Hospitalization)
  Sender: FDA-Public Use
  Company Number: JP-JNJFOC-20040810136

PATIENT
  Sex: Female
  Weight: 50 kg

DRUGS (5)
  1. PLACEBO [Suspect]
     Route: 041
     Dates: start: 20000906
  2. PLACEBO [Suspect]
     Route: 041
     Dates: start: 20001003
  3. TA-650 [Suspect]
     Indication: RHEUMATOID ARTHRITIS
     Route: 041
     Dates: start: 20001219
  4. TA-650 [Suspect]
     Route: 041
     Dates: start: 20010213
  5. PLACEBO [Suspect]
     Indication: RHEUMATOID ARTHRITIS
     Route: 041
     Dates: start: 20000822

REACTIONS (9)
  - BLADDER CANCER [None]
  - NEUROGENIC BLADDER [None]
  - CELLULITIS [None]
  - FALL [None]
  - GAIT DISTURBANCE [None]
  - ANURIA [None]
  - HAEMORRHAGIC INFARCTION [None]
  - URINARY TRACT INFECTION [None]
  - PUTAMEN HAEMORRHAGE [None]
